FAERS Safety Report 8199979-4 (Version None)
Quarter: 2012Q1

REPORT INFORMATION
  Report Type: 
  Country: None (occurrence: None)
  Receive Date: 20120312
  Receipt Date: 20120307
  Transmission Date: 20120608
  Serious: No
  Sender: FDA-Public Use
  Company Number: US-PFIZER INC-2012062291

PATIENT

DRUGS (1)
  1. LYRICA [Suspect]
     Dosage: 225 MG, 3X/DAY

REACTIONS (1)
  - PAIN [None]
